FAERS Safety Report 4641305-9 (Version None)
Quarter: 2005Q2

REPORT INFORMATION
  Report Type: 
  Country: None (occurrence: None)
  Receive Date: 20050421
  Receipt Date: 20050408
  Transmission Date: 20051028
  Serious: Yes (Other)
  Sender: FDA-Public Use
  Company Number: US-GLAXOSMITHKLINE-A0553627A

PATIENT
  Age: 61 Year
  Sex: Female

DRUGS (3)
  1. TOSITUMOMAB [Suspect]
     Indication: NON-HODGKIN'S LYMPHOMA
     Dosage: 450MG UNKNOWN
     Route: 042
     Dates: start: 20050408, end: 20050408
  2. TYLENOL (CAPLET) [Concomitant]
     Route: 048
  3. BENADRYL [Concomitant]
     Route: 048

REACTIONS (5)
  - ANXIETY [None]
  - CHEST DISCOMFORT [None]
  - INFUSION RELATED REACTION [None]
  - PRURITUS [None]
  - THROAT TIGHTNESS [None]
